FAERS Safety Report 7936141-1 (Version None)
Quarter: 2011Q4

REPORT INFORMATION
  Report Type: 
  Country: None (occurrence: None)
  Receive Date: 20111123
  Receipt Date: 20111115
  Transmission Date: 20120403
  Serious: Yes (Other)
  Sender: FDA-Public Use
  Company Number: ES-BRISTOL-MYERS SQUIBB COMPANY-16104721

PATIENT
  Age: 72 Year
  Sex: Male

DRUGS (3)
  1. LEFLUNOMIDE [Suspect]
     Indication: RHEUMATOID ARTHRITIS
     Dosage: SINCE 2 YEARS
  2. PREDNISONE [Suspect]
     Indication: RHEUMATOID ARTHRITIS
  3. ORENCIA [Suspect]
     Indication: RHEUMATOID ARTHRITIS
     Dates: start: 20110906

REACTIONS (5)
  - HAEMATURIA [None]
  - SEPSIS [None]
  - PROSTATITIS [None]
  - TYPE 2 DIABETES MELLITUS [None]
  - BACK PAIN [None]
